FAERS Safety Report 4946594-9 (Version None)
Quarter: 2006Q1

REPORT INFORMATION
  Report Type: 
  Country: None (occurrence: None)
  Receive Date: 20060317
  Receipt Date: 20060306
  Transmission Date: 20060701
  Serious: Yes (Congenital Anomaly)
  Sender: FDA-Public Use
  Company Number: AU-GLAXOSMITHKLINE-B0415970A

PATIENT

DRUGS (1)
  1. LAMOTRIGINE [Suspect]
     Dosage: 400MG PER DAY

REACTIONS (7)
  - CONGENITAL ANOMALY [None]
  - CONGENITAL MUSCULOSKELETAL ANOMALY [None]
  - DEVELOPMENTAL DELAY [None]
  - DRUG EXPOSURE DURING PREGNANCY [None]
  - HIP DYSPLASIA [None]
  - PREMATURE CLOSURE OF CRANIAL SUTURES [None]
  - VENTRICULAR SEPTAL DEFECT [None]
